FAERS Safety Report 7513092-8 (Version None)
Quarter: 2011Q2

REPORT INFORMATION
  Report Type: 
  Country: None (occurrence: None)
  Receive Date: 20110525
  Receipt Date: 20110525
  Transmission Date: 20111010
  Serious: Yes (Life-Threatening)
  Sender: FDA-Public Use
  Company Number: None

PATIENT
  Sex: Male

DRUGS (1)
  1. CITALOPRAM HYDROBROMIDE [Suspect]
     Indication: NECK PAIN
     Dosage: 1 TABLET DAILY
     Dates: start: 20110324

REACTIONS (2)
  - DRUG DOSE OMISSION [None]
  - THINKING ABNORMAL [None]
